FAERS Safety Report 11798698 (Version 1)
Quarter: 2015Q4

REPORT INFORMATION
  Report Type: Report from Study
  Country: US (occurrence: US)
  Receive Date: 20151203
  Receipt Date: 20151203
  Transmission Date: 20160305
  Serious: No
  Sender: FDA-Public Use
  Company Number: US-AMGEN-USASL2015105538

PATIENT
  Age: 69 Year
  Sex: Female

DRUGS (1)
  1. REPATHA [Suspect]
     Active Substance: EVOLOCUMAB
     Indication: HYPERCHOLESTEROLAEMIA
     Dosage: 140 MG/ML, Q2WK
     Route: 065
     Dates: start: 20150921

REACTIONS (7)
  - Flatulence [Unknown]
  - Eructation [Unknown]
  - Malaise [Unknown]
  - Infrequent bowel movements [Unknown]
  - Epigastric discomfort [Unknown]
  - Decreased appetite [Recovered/Resolved]
  - Abdominal distension [Unknown]
